FAERS Safety Report 14554152 (Version 1)
Quarter: 2018Q1

REPORT INFORMATION
  Report Type: Spontaneous
  Country: US (occurrence: US)
  Receive Date: 20180220
  Receipt Date: 20180220
  Transmission Date: 20180509
  Serious: Yes (Hospitalization, Other)
  Sender: FDA-Public Use
  Company Number: US-COLLEGIUM PHARMACEUTICAL, INC.-2018CGM00019

PATIENT
  Age: 56 Year
  Sex: Male

DRUGS (1)
  1. OXYCODONE [Suspect]
     Active Substance: OXYCODONE
     Route: 065

REACTIONS (4)
  - Drug abuse [Unknown]
  - Toxic leukoencephalopathy [Recovering/Resolving]
  - Overdose [Recovered/Resolved]
  - Paroxysmal sympathetic hyperactivity [Recovered/Resolved]
